FAERS Safety Report 23072787 (Version 1)
Quarter: 2023Q4

REPORT INFORMATION
  Report Type: Report from Study
  Country: BR (occurrence: BR)
  Receive Date: 20231017
  Receipt Date: 20231017
  Transmission Date: 20240110
  Serious: Yes (Other)
  Sender: FDA-Public Use
  Company Number: BR-JNJFOC-20231027697

PATIENT

DRUGS (1)
  1. SIMPONI [Suspect]
     Active Substance: GOLIMUMAB
     Indication: Rheumatoid arthritis
     Route: 058

REACTIONS (7)
  - Infection [Unknown]
  - Cardiovascular disorder [Unknown]
  - Adverse event [Unknown]
  - Gastrointestinal disorder [Unknown]
  - Skin reaction [Unknown]
  - Musculoskeletal disorder [Unknown]
  - Drug ineffective [Unknown]
